FAERS Safety Report 9721515 (Version 3)
Quarter: 2014Q1

REPORT INFORMATION
  Report Type: Spontaneous
  Country: US (occurrence: US)
  Receive Date: 20131130
  Receipt Date: 20140114
  Transmission Date: 20141002
  Serious: No
  Sender: FDA-Public Use
  Company Number: US-009507513-1311USA010806

PATIENT
  Age: 22 Year
  Sex: Female

DRUGS (2)
  1. NEXPLANON [Suspect]
     Dosage: UNK
     Dates: start: 20131113, end: 20131113
  2. NEXPLANON [Suspect]
     Dosage: UNK
     Dates: start: 20131113

REACTIONS (1)
  - Device difficult to use [Recovered/Resolved]
